FAERS Safety Report 8310272-9 (Version None)
Quarter: 2012Q2

REPORT INFORMATION
  Report Type: 
  Country: None (occurrence: None)
  Receive Date: 20120425
  Receipt Date: 20120418
  Transmission Date: 20120825
  Serious: Yes (Other)
  Sender: FDA-Public Use
  Company Number: CN-BAYER-2011-016838

PATIENT
  Sex: Female

DRUGS (1)
  1. AVELOX [Suspect]
     Dosage: 30 MG, QD

REACTIONS (1)
  - CAESAREAN SECTION [None]
